FAERS Safety Report 5380599-1 (Version None)
Quarter: 2007Q2

REPORT INFORMATION
  Report Type: 
  Country: None (occurrence: None)
  Receive Date: 20070530
  Receipt Date: 20070301
  Transmission Date: 20071010
  Serious: No
  Sender: FDA-Public Use
  Company Number: 2007PV031011

PATIENT
  Sex: Female

DRUGS (1)
  1. BYETTA [Suspect]
     Indication: DRUG USE FOR UNKNOWN INDICATION
     Dosage: 5 MCG; SC
     Route: 058
     Dates: start: 20070201

REACTIONS (6)
  - ASTHENIA [None]
  - DIZZINESS [None]
  - MUSCULAR WEAKNESS [None]
  - NASAL CONGESTION [None]
  - NAUSEA [None]
  - SINUS HEADACHE [None]
